FAERS Safety Report 13718623 (Version 2)
Quarter: 2017Q3

REPORT INFORMATION
  Report Type: Spontaneous
  Country: IT (occurrence: IT)
  Receive Date: 20170705
  Receipt Date: 20170713
  Transmission Date: 20171127
  Serious: Yes (Hospitalization)
  Sender: FDA-Public Use
  Company Number: IT-PFIZER INC-2017287706

PATIENT
  Age: 60 Year
  Sex: Male

DRUGS (2)
  1. SEREUPIN [Concomitant]
     Active Substance: PAROXETINE HYDROCHLORIDE
  2. HALCION [Suspect]
     Active Substance: TRIAZOLAM
     Dosage: UNK
     Route: 048

REACTIONS (3)
  - Cold sweat [Unknown]
  - Vomiting [Unknown]
  - Loss of consciousness [Unknown]

NARRATIVE: CASE EVENT DATE: 20170503
